FAERS Safety Report 16578214 (Version 1)
Quarter: 2019Q3

REPORT INFORMATION
  Report Type: Spontaneous
  Country: ES (occurrence: ES)
  Receive Date: 20190716
  Receipt Date: 20190716
  Transmission Date: 20191004
  Serious: Yes (Hospitalization, Other)
  Sender: FDA-Public Use
  Company Number: ES-JNJFOC-20190708442

PATIENT
  Sex: Female

DRUGS (4)
  1. BLEOMICINA [Suspect]
     Active Substance: BLEOMYCIN SULFATE
     Indication: LYMPHOMA
     Dosage: 13 UI
     Route: 065
     Dates: start: 20161205, end: 20170301
  2. DACARBAZINA [Suspect]
     Active Substance: DACARBAZINE
     Indication: LYMPHOMA
     Route: 065
     Dates: start: 20161205, end: 20170301
  3. VINBLASTINA [Suspect]
     Active Substance: VINBLASTINE
     Indication: LYMPHOMA
     Route: 065
     Dates: start: 20161205, end: 20170301
  4. CAELYX [Suspect]
     Active Substance: DOXORUBICIN HYDROCHLORIDE
     Indication: LYMPHOMA
     Route: 042
     Dates: start: 20161205, end: 20170301

REACTIONS (1)
  - Interstitial lung disease [Recovered/Resolved with Sequelae]

NARRATIVE: CASE EVENT DATE: 20170201
